FAERS Safety Report 8102287-0 (Version None)
Quarter: 2012Q1

REPORT INFORMATION
  Report Type: 
  Country: None (occurrence: None)
  Receive Date: 20120131
  Receipt Date: 20120131
  Transmission Date: 20120608
  Serious: Yes (Death)
  Sender: FDA-Public Use
  Company Number: None

PATIENT
  Age: 74 Year
  Sex: Female
  Weight: 92.9874 kg

DRUGS (2)
  1. TRAMADOL HCL [Suspect]
     Indication: GASTRITIS
     Dosage: 1 TAB EVERY 6 HRS
     Dates: start: 20120111
  2. TRAMADOL HCL [Suspect]
     Indication: GASTRITIS
     Dosage: 1 TAB EVERY 6 HRS
     Dates: start: 20120112

REACTIONS (1)
  - DEATH [None]
